FAERS Safety Report 13233696 (Version 1)
Quarter: 2017Q1

REPORT INFORMATION
  Report Type: Spontaneous
  Country: US (occurrence: US)
  Receive Date: 20170214
  Receipt Date: 20170214
  Transmission Date: 20170428
  Serious: Yes (Hospitalization)
  Sender: FDA-Public Use
  Company Number: None

PATIENT

DRUGS (2)
  1. IRON DEXTRAN [Suspect]
     Active Substance: IRON DEXTRAN
  2. DOPAMINE [Suspect]
     Active Substance: DOPAMINE\DOPAMINE HYDROCHLORIDE

REACTIONS (1)
  - Cardio-respiratory arrest [None]

NARRATIVE: CASE EVENT DATE: 20150126
